FAERS Safety Report 9538242 (Version 1)
Quarter: 2013Q3

REPORT INFORMATION
  Report Type: Spontaneous
  Country: US (occurrence: US)
  Receive Date: 20130920
  Receipt Date: 20130920
  Transmission Date: 20140515
  Serious: No
  Sender: FDA-Public Use
  Company Number: US-BIOGENIDEC-2013BI086855

PATIENT
  Sex: Female

DRUGS (1)
  1. AVONEX [Suspect]
     Indication: MULTIPLE SCLEROSIS
     Route: 030
     Dates: start: 20130312, end: 20130611

REACTIONS (3)
  - Bronchial hyperreactivity [Recovered/Resolved]
  - General symptom [Unknown]
  - Musculoskeletal stiffness [Unknown]
